FAERS Safety Report 7328902-7 (Version None)
Quarter: 2011Q1

REPORT INFORMATION
  Report Type: 
  Country: None (occurrence: None)
  Receive Date: 20110303
  Receipt Date: 20110228
  Transmission Date: 20110831
  Serious: Yes (Death, Hospitalization)
  Sender: FDA-Public Use
  Company Number: GB-SANOFI-AVENTIS-2011SA012596

PATIENT
  Age: 80 Year
  Sex: Male
  Weight: 86.4 kg

DRUGS (4)
  1. BLINDED THERAPY [Suspect]
     Indication: PROSTATE CANCER
     Route: 048
     Dates: start: 20101001
  2. DOCETAXEL [Suspect]
     Indication: PROSTATE CANCER
     Route: 041
  3. PREDNISONE [Suspect]
     Indication: PROSTATE CANCER
  4. BLINDED THERAPY [Suspect]
     Route: 048
     Dates: start: 20110125

REACTIONS (2)
  - DEATH [None]
  - DYSPNOEA [None]
